FAERS Safety Report 15009977 (Version 1)
Quarter: 2018Q2

REPORT INFORMATION
  Report Type: Spontaneous
  Country: US (occurrence: US)
  Receive Date: 20180521
  Receipt Date: 20180521
  Transmission Date: 20180711
  Serious: No
  Sender: FDA-Public Use
  Company Number: None

PATIENT
  Age: 68 Year
  Sex: Female

DRUGS (17)
  1. HEPARIN [Suspect]
     Active Substance: HEPARIN SODIUM
     Indication: ACUTE MYOCARDIAL INFARCTION
     Route: 042
     Dates: start: 20180308, end: 20180329
  2. ATORVASTATIN [Concomitant]
     Active Substance: ATORVASTATIN
  3. EPOPROSTENOL. [Concomitant]
     Active Substance: EPOPROSTENOL
  4. ACETAMINOPHEN. [Concomitant]
     Active Substance: ACETAMINOPHEN
  5. HYDROMORPHONE [Concomitant]
     Active Substance: HYDROMORPHONE
  6. ENOXAPARIN [Suspect]
     Active Substance: ENOXAPARIN
     Route: 058
  7. OXYCODONE-ACETAMINOPHEN [Concomitant]
     Active Substance: ACETAMINOPHEN\OXYCODONE HYDROCHLORIDE
  8. FUROSEMIDE. [Concomitant]
     Active Substance: FUROSEMIDE
  9. LORAZAPAM [Concomitant]
     Active Substance: LORAZEPAM
  10. METOPROLOL. [Concomitant]
     Active Substance: METOPROLOL
  11. LANSOPRAZOLE. [Concomitant]
     Active Substance: LANSOPRAZOLE
  12. MILRINONE [Concomitant]
     Active Substance: MILRINONE
  13. HALOPERIDOL. [Concomitant]
     Active Substance: HALOPERIDOL
  14. INSULIN REGULAR [Concomitant]
     Active Substance: INSULIN NOS
  15. MORPHINE [Concomitant]
     Active Substance: MORPHINE
  16. QUETIAPINE. [Concomitant]
     Active Substance: QUETIAPINE
  17. VANCOMYCIN [Concomitant]
     Active Substance: VANCOMYCIN

REACTIONS (5)
  - Pneumonia [None]
  - Dyspnoea [None]
  - Cardiac arrest [None]
  - Pulmonary embolism [None]
  - Heparin-induced thrombocytopenia [None]

NARRATIVE: CASE EVENT DATE: 20180329
